FAERS Safety Report 25311449 (Version 1)
Quarter: 2025Q2

REPORT INFORMATION
  Report Type: Report from Study
  Country: FR (occurrence: FR)
  Receive Date: 20250514
  Receipt Date: 20250514
  Transmission Date: 20250717
  Serious: Yes (Death, Other)
  Sender: TEVA
  Company Number: FR-TEVA-VS-3157058

PATIENT
  Age: 73 Year
  Sex: Female

DRUGS (2)
  1. MYCOPHENOLATE MOFETIL [Suspect]
     Active Substance: MYCOPHENOLATE MOFETIL
     Indication: Myasthenia gravis
     Route: 065
  2. PYRIDOSTIGMINE [Suspect]
     Active Substance: PYRIDOSTIGMINE
     Indication: Myasthenia gravis
     Route: 065

REACTIONS (3)
  - Pancytopenia [Fatal]
  - Sepsis [Fatal]
  - Drug ineffective [Unknown]
